FAERS Safety Report 11220232 (Version 1)
Quarter: 2015Q2

REPORT INFORMATION
  Report Type: Report from Study
  Country: US (occurrence: US)
  Receive Date: 20150625
  Receipt Date: 20150625
  Transmission Date: 20150821
  Serious: No
  Sender: FDA-Public Use
  Company Number: US-EXELIXIS-CABO-15005330

PATIENT
  Sex: Male

DRUGS (5)
  1. LOVENOX [Concomitant]
     Active Substance: ENOXAPARIN SODIUM
  2. LASIX [Concomitant]
     Active Substance: FUROSEMIDE
  3. CABOZANTINIB [Suspect]
     Active Substance: CABOZANTINIB
     Indication: THYROID CANCER
     Dosage: 60 MG, QD
     Route: 048
     Dates: start: 201411
  4. ATARAX [Concomitant]
     Active Substance: HYDROXYZINE\HYDROXYZINE HYDROCHLORIDE
  5. CORTISOL [Concomitant]
     Active Substance: HYDROCORTISONE

REACTIONS (2)
  - Adrenal insufficiency [Unknown]
  - Back injury [Unknown]
